FAERS Safety Report 7403298-0 (Version None)
Quarter: 2011Q1

REPORT INFORMATION
  Report Type: 
  Country: None (occurrence: None)
  Receive Date: 20110331
  Receipt Date: 20110322
  Transmission Date: 20110831
  Serious: Yes (Hospitalization)
  Sender: FDA-Public Use
  Company Number: 2008EU000079

PATIENT
  Age: 35 Year
  Sex: Male

DRUGS (6)
  1. PROGRAF [Suspect]
     Indication: RENAL TRANSPLANT
     Dosage: 9 MG, BID, ORAL
     Route: 048
     Dates: start: 20061003
  2. PANTOPRAZOLE SODIUM [Concomitant]
  3. HUMALOG [Concomitant]
  4. ATARAX [Concomitant]
  5. AMLODIPINE BESYLATE [Concomitant]
  6. CELLCEPT [Suspect]
     Indication: RENAL TRANSPLANT
     Dosage: 250 MG,BID, ORAL
     Route: 048
     Dates: start: 20061003

REACTIONS (6)
  - CYTOMEGALOVIRUS COLITIS [None]
  - PATHOGEN RESISTANCE [None]
  - CYTOMEGALOVIRUS CHORIORETINITIS [None]
  - LEUKOPENIA [None]
  - DEHYDRATION [None]
  - THROMBOCYTOPENIA [None]
